FAERS Safety Report 4897523-8 (Version None)
Quarter: 2006Q1

REPORT INFORMATION
  Report Type: 
  Country: None (occurrence: None)
  Receive Date: 20060130
  Receipt Date: 20060130
  Transmission Date: 20060701
  Serious: Yes (Death)
  Sender: FDA-Public Use
  Company Number: None

PATIENT
  Sex: Female
  Weight: 95.2554 kg

DRUGS (1)
  1. AVELOX [Suspect]
     Dosage: 400 MG 1 TABLET DAILY
     Dates: start: 20050217

REACTIONS (2)
  - FALL [None]
  - RESPIRATORY FAILURE [None]
